FAERS Safety Report 19454593 (Version 1)
Quarter: 2021Q2

REPORT INFORMATION
  Report Type: Spontaneous
  Country: US (occurrence: US)
  Receive Date: 20210623
  Receipt Date: 20210623
  Transmission Date: 20210717
  Serious: Yes (Other)
  Sender: FDA-Public Use
  Company Number: US-ASTRAZENECA-2021A532550

PATIENT
  Sex: Female

DRUGS (3)
  1. PARACETAMOL [Concomitant]
     Active Substance: ACETAMINOPHEN
  2. FASLODEX [Suspect]
     Active Substance: FULVESTRANT
     Route: 030
  3. SEVELAMER [Concomitant]
     Active Substance: SEVELAMER

REACTIONS (1)
  - Volvulus [Unknown]
